FAERS Safety Report 10055973 (Version 1)
Quarter: 2014Q2

REPORT INFORMATION
  Report Type: Spontaneous
  Country: US (occurrence: US)
  Receive Date: 20140403
  Receipt Date: 20140403
  Transmission Date: 20141212
  Serious: No
  Sender: FDA-Public Use
  Company Number: US-PFIZER INC-2014090217

PATIENT
  Age: 92 Year
  Sex: Male
  Weight: 72.56 kg

DRUGS (2)
  1. NEURONTIN [Suspect]
     Indication: NEUROPATHY PERIPHERAL
     Dosage: UNK
     Dates: start: 201309
  2. FLOMAX [Concomitant]
     Indication: PROSTATIC DISORDER
     Dosage: UNK, 1X/DAY

REACTIONS (7)
  - Personality change [Not Recovered/Not Resolved]
  - Anxiety [Not Recovered/Not Resolved]
  - Hostility [Not Recovered/Not Resolved]
  - Paranoia [Not Recovered/Not Resolved]
  - Paraesthesia [Not Recovered/Not Resolved]
  - Hypoaesthesia [Not Recovered/Not Resolved]
  - Burning sensation [Not Recovered/Not Resolved]
